FAERS Safety Report 23635136 (Version 2)
Quarter: 2024Q2

REPORT INFORMATION
  Report Type: Other
  Country: US (occurrence: None)
  Receive Date: 20240315
  Receipt Date: 20240404
  Transmission Date: 20240716
  Serious: No
  Sender: FDA-Public Use
  Company Number: US-ROCHE-3526266

PATIENT
  Age: 19 Year
  Sex: Female
  Weight: 57.658 kg

DRUGS (2)
  1. OCREVUS [Suspect]
     Active Substance: OCRELIZUMAB
     Indication: Primary progressive multiple sclerosis
     Dosage: LAST INFUSION: 06/SEP/2023, THEN 600 MG EVERY 6 MONTHS
     Route: 042
     Dates: start: 20230823
  2. OCREVUS [Suspect]
     Active Substance: OCRELIZUMAB
     Route: 042

REACTIONS (1)
  - Influenza [Not Recovered/Not Resolved]
